FAERS Safety Report 6855045-9 (Version None)
Quarter: 2010Q3

REPORT INFORMATION
  Report Type: 
  Country: None (occurrence: None)
  Receive Date: 20100717
  Receipt Date: 20080618
  Transmission Date: 20110219
  Serious: No
  Sender: FDA-Public Use
  Company Number: US-PFIZER INC-2007100784

PATIENT
  Sex: Female
  Weight: 68.181 kg

DRUGS (8)
  1. CHANTIX [Suspect]
     Indication: SMOKING CESSATION THERAPY
     Dates: start: 20070101, end: 20071126
  2. COMBIVENT [Concomitant]
  3. ADVAIR DISKUS 100/50 [Concomitant]
  4. ALBUTEROL [Concomitant]
  5. FLUOXETINE HYDROCHLORIDE [Concomitant]
  6. FOSAMAX [Concomitant]
  7. FLUTICASONE PROPIONATE [Concomitant]
  8. LIPITOR [Concomitant]

REACTIONS (6)
  - ABNORMAL DREAMS [None]
  - ACTIVITIES OF DAILY LIVING IMPAIRED [None]
  - DEPRESSION [None]
  - DISTURBANCE IN ATTENTION [None]
  - MEMORY IMPAIRMENT [None]
  - PSYCHIATRIC SYMPTOM [None]
